FAERS Safety Report 22902376 (Version 2)
Quarter: 2024Q4

REPORT INFORMATION
  Report Type: Spontaneous
  Country: US (occurrence: US)
  Receive Date: 20230904
  Receipt Date: 20241204
  Transmission Date: 20250114
  Serious: No
  Sender: SANOFI AVENTIS
  Company Number: US-SA-SAC20230901000829

PATIENT
  Age: 33 Year
  Sex: Male

DRUGS (2)
  1. ALPROLIX [Suspect]
     Active Substance: EFTRENONACOG ALFA
     Indication: Factor IX deficiency
     Dosage: 9200 UNITS (8280-10120) SLOW IV PUSH EVERY 7 DAYS FOR MAJOR BLEEDS ONCE AND REPEAT EVERY 6 TO 8 HOUR
     Route: 042
     Dates: start: 202302
  2. ALPROLIX [Suspect]
     Active Substance: EFTRENONACOG ALFA
     Indication: Factor IX deficiency
     Dosage: 9200 UNITS (8280-10120) SLOW IV PUSH EVERY 7 DAYS FOR MAJOR BLEEDS ONCE AND REPEAT EVERY 6 TO 8 HOUR
     Route: 042
     Dates: start: 202302

REACTIONS (5)
  - Fall [Unknown]
  - Traumatic haemorrhage [Recovered/Resolved]
  - Face injury [Unknown]
  - Back injury [Unknown]
  - Haemorrhage [Unknown]

NARRATIVE: CASE EVENT DATE: 20230826
